FAERS Safety Report 23457923 (Version 2)
Quarter: 2024Q1

REPORT INFORMATION
  Report Type: Spontaneous
  Country: JP (occurrence: None)
  Receive Date: 20240130
  Receipt Date: 20240304
  Transmission Date: 20240410
  Serious: Yes (Life-Threatening, Hospitalization)
  Sender: FDA-Public Use
  Company Number: 2023A294398

PATIENT
  Age: 70 Year
  Sex: Male

DRUGS (8)
  1. IMJUDO [Suspect]
     Active Substance: TREMELIMUMAB\TREMELIMUMAB-ACTL
     Indication: Non-small cell lung cancer
     Route: 041
     Dates: start: 20230905, end: 20231128
  2. IMFINZI [Suspect]
     Active Substance: DURVALUMAB
     Indication: Non-small cell lung cancer
     Route: 041
     Dates: start: 20230905, end: 20231128
  3. PREDONINE [Suspect]
     Active Substance: PREDNISOLONE
     Indication: Non-small cell lung cancer
     Route: 048
     Dates: start: 20231227, end: 20240101
  4. PREDONINE [Suspect]
     Active Substance: PREDNISOLONE
     Indication: Non-small cell lung cancer
     Route: 041
     Dates: start: 20240102, end: 20240107
  5. PREDONINE [Suspect]
     Active Substance: PREDNISOLONE
     Indication: Non-small cell lung cancer
     Route: 048
     Dates: start: 20240108, end: 20240114
  6. PREDONINE [Suspect]
     Active Substance: PREDNISOLONE
     Indication: Non-small cell lung cancer
     Route: 048
     Dates: start: 20240115
  7. CARBOPLATIN [Concomitant]
     Active Substance: CARBOPLATIN
     Indication: Non-small cell lung cancer
  8. ABRAXANE [Concomitant]
     Active Substance: PACLITAXEL
     Indication: Non-small cell lung cancer
     Dosage: 117.0MG UNKNOWN
     Dates: start: 20230905, end: 20231212

REACTIONS (3)
  - Interstitial lung disease [Recovering/Resolving]
  - Drug-induced liver injury [Recovering/Resolving]
  - Systemic candida [Recovered/Resolved]

NARRATIVE: CASE EVENT DATE: 20231224
